FAERS Safety Report 24558779 (Version 1)
Quarter: 2024Q4

REPORT INFORMATION
  Report Type: Spontaneous
  Country: US (occurrence: US)
  Receive Date: 20241029
  Receipt Date: 20241029
  Transmission Date: 20250114
  Serious: Yes (Death, Hospitalization)
  Sender: AMGEN
  Company Number: US-AMGEN-USASP2024211143

PATIENT
  Age: 68 Year
  Sex: Male

DRUGS (2)
  1. PREDNISONE [Suspect]
     Active Substance: PREDNISONE
     Indication: Haemolytic anaemia
     Dosage: 1 MILLIGRAM/KILOGRAM, QD (TAPER)
     Route: 065
  2. CLINDAMYCIN [Concomitant]
     Active Substance: CLINDAMYCIN

REACTIONS (12)
  - Death [Fatal]
  - Escherichia pyelonephritis [Unknown]
  - Encephalopathy [Unknown]
  - Disseminated cryptococcosis [Unknown]
  - Stenotrophomonas test positive [Unknown]
  - Respiratory failure [Unknown]
  - Escherichia bacteraemia [Unknown]
  - Aspergillus infection [Unknown]
  - Pneumonia cytomegaloviral [Unknown]
  - Herpes simplex pneumonia [Unknown]
  - Hypogammaglobulinaemia [Unknown]
  - Seizure [Unknown]
